FAERS Safety Report 7440005-X (Version None)
Quarter: 2011Q2

REPORT INFORMATION
  Report Type: 
  Country: None (occurrence: None)
  Receive Date: 20110427
  Receipt Date: 20110421
  Transmission Date: 20111010
  Serious: Yes (Death, Life-Threatening, Hospitalization, Other)
  Sender: FDA-Public Use
  Company Number: PHEH2007US16439

PATIENT
  Sex: Male
  Weight: 92.3 kg

DRUGS (18)
  1. EXJADE [Suspect]
     Indication: IRON OVERLOAD
     Dosage: 500 MG, DAILY
     Route: 048
     Dates: start: 20070625, end: 20070807
  2. COUMADIN [Concomitant]
  3. BOOST [Concomitant]
     Dosage: 250 ML, TID
     Route: 048
  4. LEVOTHYROXINE SODIUM [Concomitant]
     Dosage: 0.025 MG, DAILY
     Route: 048
  5. PROTEIN SUPPLEMENTS [Concomitant]
  6. CEFTRIAXONE [Concomitant]
     Dosage: 1 G, DAILY
     Route: 042
  7. DIGOXIN [Concomitant]
     Dosage: 0.125 MG, DAILY
     Route: 048
  8. PREDNISONE [Concomitant]
     Dosage: 3 MG, DAILY
     Route: 048
  9. METRONIDAZOLE [Concomitant]
     Dosage: 500 MG, EVERY 6 HOURS
     Route: 042
  10. ANTIARRHYTHMICS, CLASS I AND III [Concomitant]
  11. OXYCODONE HCL [Concomitant]
     Dosage: 5 MG, PRN
     Route: 048
  12. FENTANYL [Concomitant]
  13. AMIODARONE [Concomitant]
     Dosage: 100 MG, DAILY
     Route: 048
  14. FOSAMAX [Concomitant]
     Dosage: 35 MG, WEEKLY
  15. WARFARIN [Concomitant]
     Dosage: 3 MG, EVERY OTHER DAY
  16. ANTIHISTAMINES [Concomitant]
  17. LORATADINE [Concomitant]
     Dosage: 10 MG, DAILY
     Route: 048
  18. DIGOXIN [Concomitant]
     Dosage: 0.125 MG, DAILY

REACTIONS (17)
  - HEPATIC FAILURE [None]
  - DIARRHOEA [None]
  - DECREASED APPETITE [None]
  - PANCYTOPENIA [None]
  - CONTUSION [None]
  - LEUKOPENIA [None]
  - THROMBOCYTOPENIA [None]
  - MUSCULOSKELETAL PAIN [None]
  - GASTROINTESTINAL SOUNDS ABNORMAL [None]
  - DYSPNOEA [None]
  - ABDOMINAL PAIN [None]
  - ABDOMINAL DISCOMFORT [None]
  - JUGULAR VEIN DISTENSION [None]
  - PAIN IN EXTREMITY [None]
  - ORTHOPNOEA [None]
  - NAUSEA [None]
  - JAUNDICE [None]
